FAERS Safety Report 4975107-0 (Version None)
Quarter: 2006Q2

REPORT INFORMATION
  Report Type: 
  Country: None (occurrence: None)
  Receive Date: 20060411
  Receipt Date: 20060403
  Transmission Date: 20061013
  Serious: Yes (Death)
  Sender: FDA-Public Use
  Company Number: CIP06000782

PATIENT
  Age: 34 Year
  Sex: Female

DRUGS (2)
  1. DANTRIUM [Suspect]
     Dosage: IV NOS
     Route: 042
  2. CYPROHEPTADINE HCL [Concomitant]

REACTIONS (2)
  - CARDIO-RESPIRATORY ARREST [None]
  - DRUG INEFFECTIVE [None]
